FAERS Safety Report 15289881 (Version 1)
Quarter: 2018Q3

REPORT INFORMATION
  Report Type: Spontaneous
  Country: US (occurrence: US)
  Receive Date: 20180803
  Receipt Date: 20180803
  Transmission Date: 20181010
  Serious: Yes (Disabling, Other)
  Sender: FDA-Public Use
  Company Number: None

PATIENT
  Sex: Female
  Weight: 76.2 kg

DRUGS (9)
  1. CENTRUM SILVER [Concomitant]
     Active Substance: MINERALS\VITAMINS
  2. BIOFLAVONOIDS [Suspect]
     Active Substance: BIOFLAVONOIDS
  3. MAGNESIUM [Concomitant]
     Active Substance: MAGNESIUM
  4. SYNTHROID [Suspect]
     Active Substance: LEVOTHYROXINE SODIUM
     Indication: HYPOTHYROIDISM
     Dates: start: 199809, end: 20100417
  5. NO DRUG NAME [Concomitant]
  6. ZINC. [Concomitant]
     Active Substance: ZINC
  7. ACTILIN [Concomitant]
  8. SELENIUM [Concomitant]
     Active Substance: SELENIUM
  9. ARMOUR THYROID [Concomitant]
     Active Substance: THYROID, PORCINE

REACTIONS (12)
  - Vomiting [None]
  - Meningioma [None]
  - Gastrointestinal disorder [None]
  - Hypothyroidism [None]
  - Alopecia [None]
  - Dry skin [None]
  - Dizziness [None]
  - Lethargy [None]
  - Fatigue [None]
  - Headache [None]
  - Retinal detachment [None]
  - Nausea [None]
